FAERS Safety Report 8360903-2 (Version None)
Quarter: 2012Q1

REPORT INFORMATION
  Report Type: 
  Country: None (occurrence: None)
  Receive Date: 20120323
  Receipt Date: 20110322
  Transmission Date: 20120608
  Serious: Yes (Other)
  Sender: FDA-Public Use
  Company Number: 163-21880-11012376

PATIENT
  Age: 73 Year
  Sex: Male

DRUGS (2)
  1. ALKERAN [Concomitant]
  2. REVLIMID [Suspect]
     Indication: MULTIPLE MYELOMA
     Dosage: 5 MG, DAYS 1-21, OFF 7 DAYS, PO
     Route: 048
     Dates: start: 20080115, end: 20101013

REACTIONS (2)
  - DRUG INEFFECTIVE [None]
  - MULTIPLE MYELOMA [None]
